FAERS Safety Report 18554036 (Version 1)
Quarter: 2020Q4

REPORT INFORMATION
  Report Type: Spontaneous
  Country: US (occurrence: US)
  Receive Date: 20201127
  Receipt Date: 20201127
  Transmission Date: 20210114
  Serious: Yes (Other)
  Sender: FDA-Public Use
  Company Number: US-PFIZER INC-2020215803

PATIENT
  Age: 56 Year
  Sex: Female
  Weight: 113.4 kg

DRUGS (6)
  1. XELJANZ XR [Suspect]
     Active Substance: TOFACITINIB CITRATE
     Indication: PSORIATIC ARTHROPATHY
     Dosage: 11 MG, DAILY
     Route: 048
     Dates: start: 201912
  2. XELJANZ XR [Suspect]
     Active Substance: TOFACITINIB CITRATE
     Dosage: 11 MG, DAILY
     Route: 048
     Dates: start: 202006, end: 20201020
  3. LASIX [Concomitant]
     Active Substance: FUROSEMIDE
     Dosage: UNK UNK, ALTERNATE DAY
  4. POTASSIUM [Concomitant]
     Active Substance: POTASSIUM
     Dosage: UNK UNK, ALTERNATE DAY
  5. MELOXICAM. [Concomitant]
     Active Substance: MELOXICAM
     Dosage: UNK UNK, ALTERNATE DAY
  6. LOSARTAN. [Concomitant]
     Active Substance: LOSARTAN
     Dosage: UNK UNK, ALTERNATE DAY

REACTIONS (2)
  - Malignant melanoma [Not Recovered/Not Resolved]
  - Abscess limb [Unknown]

NARRATIVE: CASE EVENT DATE: 202010
